FAERS Safety Report 16839593 (Version 1)
Quarter: 2019Q4

REPORT INFORMATION
  Report Type: Spontaneous
  Country: US (occurrence: US)
  Receive Date: 20190922
  Receipt Date: 20190922
  Transmission Date: 20200122
  Serious: No
  Sender: FDA-Public Use
  Company Number: None

PATIENT
  Sex: Female
  Weight: 53.55 kg

DRUGS (1)
  1. OXYCODONE HCI 15 MG TAB [Suspect]
     Active Substance: OXYCODONE HYDROCHLORIDE
     Indication: PAIN
     Dosage: ?          QUANTITY:120 TABLET(S);?
     Route: 048
     Dates: start: 20190906, end: 20190922

REACTIONS (6)
  - Product substitution issue [None]
  - Suspected product quality issue [None]
  - Abdominal pain upper [None]
  - Headache [None]
  - Nausea [None]
  - Therapeutic product effect incomplete [None]
